FAERS Safety Report 4690212-4 (Version None)
Quarter: 2005Q2

REPORT INFORMATION
  Report Type: 
  Country: None (occurrence: None)
  Receive Date: 20050613
  Receipt Date: 20050531
  Transmission Date: 20051028
  Serious: Yes (Hospitalization)
  Sender: FDA-Public Use
  Company Number: 2005AD000045

PATIENT

DRUGS (2)
  1. KEFLEX [Suspect]
     Indication: CELLULITIS
  2. OSELTAMIVIR PHOSPHATE [Suspect]

REACTIONS (3)
  - CELLULITIS [None]
  - ERYTHEMA MULTIFORME [None]
  - LOCALISED INFECTION [None]
